FAERS Safety Report 6102195-0 (Version None)
Quarter: 2009Q1

REPORT INFORMATION
  Report Type: 
  Country: None (occurrence: None)
  Receive Date: 20090303
  Receipt Date: 20090303
  Transmission Date: 20090719
  Serious: No
  Sender: FDA-Public Use
  Company Number: None

PATIENT
  Age: 39 Year
  Sex: Female
  Weight: 102.5129 kg

DRUGS (1)
  1. COMPAZINE [Suspect]
     Indication: HEADACHE
     Dosage: ONCE IV BOLUS
     Route: 040
     Dates: start: 20090226, end: 20090226

REACTIONS (3)
  - ANXIETY [None]
  - CHEST PAIN [None]
  - FEELING JITTERY [None]
